FAERS Safety Report 11785715 (Version 1)
Quarter: 2015Q4

REPORT INFORMATION
  Report Type: Spontaneous
  Country: US (occurrence: US)
  Receive Date: 20151130
  Receipt Date: 20151130
  Transmission Date: 20160305
  Serious: No
  Sender: FDA-Public Use
  Company Number: US-009507513-1511USA012367

PATIENT
  Age: 19 Year
  Sex: Female
  Weight: 74.38 kg

DRUGS (2)
  1. NEXPLANON [Suspect]
     Active Substance: ETONOGESTREL
     Indication: CONTRACEPTION
     Dosage: UNK
     Route: 059
     Dates: start: 20140131, end: 20151110
  2. LAMICTAL [Concomitant]
     Active Substance: LAMOTRIGINE

REACTIONS (6)
  - Unintended pregnancy [Unknown]
  - Menstruation normal [Recovered/Resolved]
  - Menstruation normal [Recovered/Resolved]
  - Pregnancy with implant contraceptive [Unknown]
  - Weight increased [Unknown]
  - Acne [Unknown]

NARRATIVE: CASE EVENT DATE: 20150909
